FAERS Safety Report 9985318 (Version 2)
Quarter: 2014Q1

REPORT INFORMATION
  Report Type: Report from Study
  Country: GB (occurrence: GB)
  Receive Date: 20140307
  Receipt Date: 20140307
  Transmission Date: 20141002
  Serious: Yes (Life-Threatening)
  Sender: FDA-Public Use
  Company Number: GB-ABBVIE-13P-167-1073489-00

PATIENT
  Age: 0 Day
  Sex: Female

DRUGS (3)
  1. PROGESTERONE [Suspect]
     Indication: PREMATURE LABOUR
     Dosage: 200MG ONCE DAILY
     Route: 064
     Dates: start: 20121212, end: 20130201
  2. PROGESTERONE [Suspect]
     Indication: PROPHYLAXIS
  3. PROGESTERONE [Suspect]
     Indication: MATERNAL EXPOSURE TIMING UNSPECIFIED

REACTIONS (4)
  - Foetal heart rate abnormal [Recovered/Resolved with Sequelae]
  - Hypoxic-ischaemic encephalopathy [Unknown]
  - Foetal hypokinesia [Unknown]
  - Foetal exposure during pregnancy [Unknown]
